FAERS Safety Report 4385623-0 (Version None)
Quarter: 2004Q2

REPORT INFORMATION
  Report Type: 
  Country: None (occurrence: None)
  Receive Date: 20040625
  Receipt Date: 20040625
  Transmission Date: 20050107
  Serious: No
  Sender: FDA-Public Use
  Company Number: None

PATIENT
  Age: 80 Year
  Sex: Female

DRUGS (1)
  1. WARFARIN SODIUM [Suspect]
     Indication: ATRIAL FIBRILLATION
     Dosage: PO
     Route: 048

REACTIONS (12)
  - ABDOMINAL PAIN [None]
  - ATRIAL FIBRILLATION [None]
  - COLITIS ISCHAEMIC [None]
  - DIVERTICULITIS [None]
  - DRUG TOXICITY [None]
  - GASTRIC DISORDER [None]
  - HAEMORRHAGE [None]
  - INTERNATIONAL NORMALISED RATIO INCREASED [None]
  - NAUSEA [None]
  - RECTAL HAEMORRHAGE [None]
  - SWELLING [None]
  - VOMITING [None]
